FAERS Safety Report 23228576 (Version 1)
Quarter: 2023Q4

REPORT INFORMATION
  Report Type: Spontaneous
  Country: SI (occurrence: SI)
  Receive Date: 20231125
  Receipt Date: 20231125
  Transmission Date: 20240110
  Serious: Yes (Hospitalization)
  Sender: FDA-Public Use
  Company Number: SI-STRIDES ARCOLAB LIMITED-2023SP017354

PATIENT
  Age: 24 Year
  Sex: Male

DRUGS (9)
  1. NAPROXEN [Suspect]
     Active Substance: NAPROXEN
     Indication: Pain
     Dosage: UNK
     Route: 065
  2. NAPROXEN [Suspect]
     Active Substance: NAPROXEN
     Dosage: 550 MILLIGRAM, EVERY 12 HRS
     Route: 065
  3. ASPIRIN [Suspect]
     Active Substance: ASPIRIN
     Indication: Antiplatelet therapy
     Dosage: UNK
     Route: 065
  4. ASPIRIN [Suspect]
     Active Substance: ASPIRIN
     Dosage: 100 MILLIGRAM
     Route: 065
  5. TICAGRELOR [Suspect]
     Active Substance: TICAGRELOR
     Indication: Antiplatelet therapy
     Dosage: UNK
     Route: 065
  6. TICAGRELOR [Suspect]
     Active Substance: TICAGRELOR
     Dosage: 90 MILLIGRAM, EVERY 12 HRS
     Route: 065
  7. CLOPIDOGREL [Suspect]
     Active Substance: CLOPIDOGREL BISULFATE
     Indication: Antiplatelet therapy
     Dosage: 75 MILLIGRAM
     Route: 065
  8. COVID-19 VACCINE NOS [Suspect]
     Active Substance: COVID-19 VACCINE NOS
     Indication: COVID-19 immunisation
     Dosage: UNK, SINGLE; THIRD DOSE OF COVID-19 VACCINE
     Route: 065
  9. IBUPROFEN [Concomitant]
     Active Substance: IBUPROFEN
     Indication: Tension headache
     Dosage: UNK
     Route: 065

REACTIONS (4)
  - Renal infarct [Recovered/Resolved]
  - Alanine aminotransferase increased [Recovered/Resolved]
  - Vasculitis [Recovered/Resolved]
  - Haematuria [Recovered/Resolved]
